FAERS Safety Report 17273990 (Version 1)
Quarter: 2020Q1

REPORT INFORMATION
  Report Type: Report from Study
  Country: US (occurrence: US)
  Receive Date: 20200115
  Receipt Date: 20200115
  Transmission Date: 20200409
  Serious: Yes (Hospitalization)
  Sender: FDA-Public Use
  Company Number: US-ACTELION-A-US2014-105074

PATIENT
  Age: 73 Year
  Sex: Female
  Weight: 84.81 kg

DRUGS (4)
  1. WARFARIN [Concomitant]
     Active Substance: WARFARIN
  2. ASPIRIN. [Concomitant]
     Active Substance: ASPIRIN
  3. OPSUMIT [Suspect]
     Active Substance: MACITENTAN
     Dosage: 10 MG, QD
     Route: 048
     Dates: start: 20140720
  4. OPSUMIT [Suspect]
     Active Substance: MACITENTAN
     Indication: PULMONARY ARTERIAL HYPERTENSION
     Dosage: 10 MG, QD
     Route: 048
     Dates: start: 20140618

REACTIONS (10)
  - Malaise [Not Recovered/Not Resolved]
  - Rhinorrhoea [Not Recovered/Not Resolved]
  - Hospitalisation [Unknown]
  - Urinary tract infection [Unknown]
  - Nasopharyngitis [Not Recovered/Not Resolved]
  - Oropharyngeal pain [Unknown]
  - Condition aggravated [Unknown]
  - Upper-airway cough syndrome [Not Recovered/Not Resolved]
  - Cystitis [Unknown]
  - Cough [Not Recovered/Not Resolved]

NARRATIVE: CASE EVENT DATE: 20140904
